FAERS Safety Report 4992995-2 (Version None)
Quarter: 2006Q1

REPORT INFORMATION
  Report Type: 
  Country: None (occurrence: None)
  Receive Date: 20060313
  Receipt Date: 20051228
  Transmission Date: 20060701
  Serious: No
  Sender: FDA-Public Use
  Company Number: 2005-BP-21903BP

PATIENT
  Sex: Male

DRUGS (6)
  1. SPIRIVA [Suspect]
     Indication: ASTHMA
     Dosage: 18 MCG (18 MCG), IH
     Route: 055
     Dates: start: 20051201
  2. ALBUTEROL SULFATE AUTOHALER [Concomitant]
  3. ATENOLOL [Concomitant]
  4. WELLBUTRIN [Concomitant]
  5. REMERON [Concomitant]
  6. XANAX XR [Concomitant]

REACTIONS (1)
  - PAIN IN EXTREMITY [None]
